FAERS Safety Report 4477066-6 (Version None)
Quarter: 2004Q4

REPORT INFORMATION
  Report Type: 
  Country: None (occurrence: None)
  Receive Date: 20041018
  Receipt Date: 20040930
  Transmission Date: 20050328
  Serious: Yes (Other)
  Sender: FDA-Public Use
  Company Number: JP-BRISTOL-MYERS SQUIBB COMPANY-12724530

PATIENT
  Age: 59 Year
  Sex: Female

DRUGS (12)
  1. GATIFLO TABS 100 MG [Suspect]
     Indication: PNEUMONIA
     Route: 048
     Dates: start: 20040901, end: 20040902
  2. GLUCOBAY [Concomitant]
     Route: 048
  3. AMARYL [Concomitant]
     Route: 048
  4. LOXONIN [Concomitant]
     Route: 048
  5. MUCOSTA [Concomitant]
     Route: 048
  6. SELBEX [Concomitant]
     Route: 048
  7. ALTAT [Concomitant]
     Route: 048
  8. LACB [Concomitant]
     Route: 048
  9. LENDORMIN [Concomitant]
     Route: 048
  10. NORVASC [Concomitant]
     Route: 048
  11. ADONA [Concomitant]
     Route: 048
  12. TRANSAMIN [Concomitant]
     Route: 048

REACTIONS (1)
  - HYPOGLYCAEMIA [None]
